FAERS Safety Report 4831295-8 (Version None)
Quarter: 2005Q4

REPORT INFORMATION
  Report Type: 
  Country: None (occurrence: None)
  Receive Date: 20051118
  Receipt Date: 20051108
  Transmission Date: 20060501
  Serious: Yes (Other)
  Sender: FDA-Public Use
  Company Number: 2005CG01840

PATIENT
  Age: 50 Year
  Sex: Female

DRUGS (1)
  1. RHINOCORT [Suspect]
     Indication: NASAL POLYPS
     Route: 045

REACTIONS (1)
  - OSTEONECROSIS [None]
